FAERS Safety Report 5045495-8 (Version None)
Quarter: 2006Q2

REPORT INFORMATION
  Report Type: 
  Country: None (occurrence: None)
  Receive Date: 20060601
  Receipt Date: 20060404
  Transmission Date: 20061013
  Serious: No
  Sender: FDA-Public Use
  Company Number: 2006-BP-03774BP

PATIENT
  Sex: Male

DRUGS (10)
  1. SPIRIVA [Suspect]
     Indication: CHRONIC OBSTRUCTIVE PULMONARY DISEASE
     Dosage: 18 MCG (18 MCG, 1 IN 1 D), IH
     Route: 055
     Dates: start: 20040101
  2. SPIRIVA [Suspect]
  3. SPIRIVA [Suspect]
  4. SEREVENT [Concomitant]
  5. UNIFIL [Concomitant]
  6. LORTIDINE [Concomitant]
  7. SINGULAIR [Concomitant]
  8. CRESTOR [Concomitant]
  9. PRILOSEC [Concomitant]
  10. ALBUTEROL SPIROS [Concomitant]

REACTIONS (1)
  - DRUG INEFFECTIVE [None]
